FAERS Safety Report 5010304-X (Version None)
Quarter: 2006Q2

REPORT INFORMATION
  Report Type: 
  Country: None (occurrence: None)
  Receive Date: 20060404
  Receipt Date: 20060203
  Transmission Date: 20061013
  Serious: Yes (Death)
  Sender: FDA-Public Use
  Company Number: US200601004275

PATIENT
  Age: 47 Year
  Sex: Male
  Weight: 86.6 kg

DRUGS (2)
  1. CYMBALTA [Suspect]
     Indication: DEPRESSION
     Dosage: 30 MG, ORAL
     Route: 048
     Dates: start: 20051212
  2. AMBIEN [Concomitant]

REACTIONS (1)
  - COMPLETED SUICIDE [None]
